FAERS Safety Report 5459937-7 (Version None)
Quarter: 2007Q3

REPORT INFORMATION
  Report Type: 
  Country: None (occurrence: None)
  Receive Date: 20070919
  Receipt Date: 20070430
  Transmission Date: 20080115
  Serious: Yes (Hospitalization, Other)
  Sender: FDA-Public Use
  Company Number: US-ASTRAZENECA-2007UW09229

PATIENT
  Age: 53 Year
  Sex: Female
  Weight: 63.6 kg

DRUGS (10)
  1. SEROQUEL [Suspect]
     Indication: DEPRESSION
     Dosage: 5 PILLS
     Route: 048
     Dates: end: 20060301
  2. SEROQUEL [Suspect]
     Indication: BIPOLAR DISORDER
     Dosage: 5 PILLS
     Route: 048
     Dates: end: 20060301
  3. ZYPREXA [Suspect]
  4. RISPERDAL [Concomitant]
     Dosage: 1-5 PILLS
  5. ABILIFY [Concomitant]
  6. CLOZARIL [Concomitant]
  7. GEODON [Concomitant]
  8. LITHIUM [Concomitant]
  9. DEPAKOTE [Concomitant]
  10. LAMICTAL [Concomitant]

REACTIONS (3)
  - DIABETES MELLITUS [None]
  - PANCREATITIS [None]
  - WEIGHT INCREASED [None]
